FAERS Safety Report 17375877 (Version 3)
Quarter: 2020Q4

REPORT INFORMATION
  Report Type: Other
  Country: CZ (occurrence: CZ)
  Receive Date: 20200206
  Receipt Date: 20201013
  Transmission Date: 20210113
  Serious: Yes (Hospitalization, Other)
  Sender: FDA-Public Use
  Company Number: CZ-ROCHE-2538392

PATIENT
  Age: 56 Year
  Sex: Male

DRUGS (19)
  1. METHOTREXATE. [Suspect]
     Active Substance: METHOTREXATE
     Dosage: TWO CYCLES OF CNS PENETRATING CHEMOTHERAPY (MTX AND ARAC)
     Route: 065
  2. BENDAMUSTINE [Suspect]
     Active Substance: BENDAMUSTINE
     Indication: MANTLE CELL LYMPHOMA
     Dosage: SECOND CYCLE OF R-B
     Route: 065
     Dates: start: 201901
  3. CARBOPLATIN. [Suspect]
     Active Substance: CARBOPLATIN
     Indication: MANTLE CELL LYMPHOMA
     Dosage: UNK, CYCLIC
     Route: 065
  4. CYTARABINE. [Suspect]
     Active Substance: CYTARABINE
     Dosage: FOLLOWING CYCLE OF HD ARAC WAS FORTIFIED WITH BENDAMUSTINE (SO CALLED R-BAC)
     Route: 065
  5. CYTARABINE. [Suspect]
     Active Substance: CYTARABINE
     Dosage: TWO CYCLES OF CNS PENETRATING CHEMOTHERAPY (MTX AND ARAC)
     Route: 065
  6. METHOTREXATE. [Suspect]
     Active Substance: METHOTREXATE
     Indication: MANTLE CELL LYMPHOMA
     Dosage: ONE CYCLE OF HIGH DOSE METHOTREXATE (HD MTX)
     Route: 065
     Dates: start: 201901
  7. IFOSFAMIDE. [Suspect]
     Active Substance: IFOSFAMIDE
     Indication: MANTLE CELL LYMPHOMA
     Dosage: UNK, CYCLIC
     Route: 065
  8. MELPHALAN. [Concomitant]
     Active Substance: MELPHALAN
  9. RITUXIMAB. [Suspect]
     Active Substance: RITUXIMAB
     Indication: MANTLE CELL LYMPHOMA
     Dosage: COMPLETED RESCUE THERAPY BY THE ADMINISTRATION OF THE 3RD CYCLE OF RICE
     Route: 065
  10. RITUXIMAB. [Suspect]
     Active Substance: RITUXIMAB
     Dosage: NORDIC PROTOCOL (3 CYCLES R-MAXICHOP ALTERNATING WITH 3 CYCLES OF RITUXIMAB WITH HIGH DOSE CYTARABIN
     Route: 065
  11. BENDAMUSTINE [Suspect]
     Active Substance: BENDAMUSTINE
     Dosage: FOLLOWING CYCLE OF HD ARAC WAS THUS FORTIFIED WITH BENDAMUSTINE (SO CALLED R-BAC)
     Route: 065
  12. ETOPOSIDE. [Suspect]
     Active Substance: ETOPOSIDE
     Indication: MANTLE CELL LYMPHOMA
     Dosage: UNK, CYCLIC
     Route: 065
  13. RITUXIMAB. [Suspect]
     Active Substance: RITUXIMAB
     Dosage: GIVEN THIRD LINE TREATMENT WITH A COMBINATION OF RITUXIMAB AND BENDAMUSTINE (R-B REGIMEN)
     Route: 065
  14. RITUXIMAB. [Suspect]
     Active Substance: RITUXIMAB
     Dosage: HIGH DOSE CYTARABINE (HD ARAC) WITH RITUXIMAB
     Route: 065
     Dates: start: 201902
  15. BENDAMUSTINE [Suspect]
     Active Substance: BENDAMUSTINE
     Dosage: INITIATED THIRD LINE TREATMENT WITH A COMBINATION OF RITUXIMAB AND BENDAMUSTINE (R-B REGIMEN).
     Route: 065
  16. RITUXIMAB. [Suspect]
     Active Substance: RITUXIMAB
     Dosage: SECOND CYCLE OF R-B
     Route: 065
     Dates: start: 201901
  17. CYTARABINE. [Suspect]
     Active Substance: CYTARABINE
     Indication: MANTLE CELL LYMPHOMA
     Dosage: HIGH DOSE CYTARABINE (HD ARAC) WITH RITUXIMAB
     Route: 065
     Dates: start: 201902
  18. CARMUSTINE. [Concomitant]
     Active Substance: CARMUSTINE
  19. RITUXIMAB. [Suspect]
     Active Substance: RITUXIMAB
     Dosage: INITIATED RESCUE THERAPY WITH PLATINUM REGIMEN (R-ICE; RITUXIMAB, IPHOSPHAMIDE, CARBOPLATIN, ETOPOSI
     Route: 065

REACTIONS (5)
  - Mantle cell lymphoma [Recovered/Resolved]
  - Malignant neoplasm progression [Recovered/Resolved]
  - Product use in unapproved indication [Unknown]
  - Renal failure [Unknown]
  - Off label use [Unknown]
